FAERS Safety Report 21043089 (Version 1)
Quarter: 2022Q3

REPORT INFORMATION
  Report Type: Spontaneous
  Country: JP (occurrence: JP)
  Receive Date: 20220705
  Receipt Date: 20220705
  Transmission Date: 20221027
  Serious: No
  Sender: FDA-Public Use
  Company Number: JP-GSKNCCC-Case-01523412_AE-59626

PATIENT

DRUGS (1)
  1. SOTROVIMAB [Suspect]
     Active Substance: SOTROVIMAB
     Dosage: 500 MG/100 ML, ONLY 50 ML COULD BE ADMINISTERED DUE TO BEING REMOVED BY THE PATIENT HERSELF
     Dates: start: 20220626

REACTIONS (2)
  - Drug delivery system removal [Unknown]
  - Accidental underdose [Unknown]
